FAERS Safety Report 7228484-4 (Version None)
Quarter: 2011Q1

REPORT INFORMATION
  Report Type: 
  Country: None (occurrence: None)
  Receive Date: 20110114
  Receipt Date: 20101229
  Transmission Date: 20110831
  Serious: Yes (Hospitalization)
  Sender: FDA-Public Use
  Company Number: JP-JNJCH-2011001183

PATIENT
  Sex: Male

DRUGS (1)
  1. RIUP %5 [Suspect]
     Indication: ANDROGENETIC ALOPECIA
     Dosage: TEXT:1ML 2X DAY
     Route: 061
     Dates: start: 20100914, end: 20101014

REACTIONS (1)
  - BACK PAIN [None]
